FAERS Safety Report 7292614-9 (Version None)
Quarter: 2011Q1

REPORT INFORMATION
  Report Type: 
  Country: None (occurrence: None)
  Receive Date: 20110215
  Receipt Date: 20110207
  Transmission Date: 20110831
  Serious: Yes (Hospitalization)
  Sender: FDA-Public Use
  Company Number: US-SANOFI-AVENTIS-2011SA004790

PATIENT
  Age: 77 Year
  Sex: Male

DRUGS (3)
  1. LOVENOX [Suspect]
     Route: 058
     Dates: start: 20110114
  2. LOVENOX [Suspect]
     Route: 058
     Dates: start: 20110114
  3. LOVENOX [Suspect]
     Route: 058
     Dates: start: 20110114

REACTIONS (1)
  - HYPOGLYCAEMIA [None]
